FAERS Safety Report 7022910-1 (Version None)
Quarter: 2010Q3

REPORT INFORMATION
  Report Type: 
  Country: None (occurrence: None)
  Receive Date: 20100930
  Receipt Date: 20100923
  Transmission Date: 20110219
  Serious: Yes (Other)
  Sender: FDA-Public Use
  Company Number: US-PFIZER INC-2010121912

PATIENT
  Age: 61 Year
  Sex: Female

DRUGS (6)
  1. CHANTIX [Suspect]
     Indication: SMOKING CESSATION THERAPY
     Dosage: 1 MG, UNK
     Route: 048
     Dates: start: 20090101
  2. CHANTIX [Suspect]
     Dosage: UNK
     Dates: start: 20100801
  3. BACLOFEN [Concomitant]
     Indication: MULTIPLE SCLEROSIS
     Dosage: UNK
  4. NEURONTIN [Concomitant]
     Indication: MULTIPLE SCLEROSIS
     Dosage: UNK
  5. TENORMIN [Concomitant]
     Indication: CARDIAC DISORDER
     Dosage: UNK
  6. COLACE [Concomitant]
     Dosage: UNK

REACTIONS (6)
  - ABDOMINAL DISCOMFORT [None]
  - ABDOMINAL DISTENSION [None]
  - ASTHMA [None]
  - DRUG HYPERSENSITIVITY [None]
  - DRUG INTOLERANCE [None]
  - FLATULENCE [None]
